FAERS Safety Report 4725536-5 (Version None)
Quarter: 2005Q3

REPORT INFORMATION
  Report Type: 
  Country: None (occurrence: None)
  Receive Date: 20050725
  Receipt Date: 20050711
  Transmission Date: 20060218
  Serious: Yes (Hospitalization, Other)
  Sender: FDA-Public Use
  Company Number: US-2005-006269

PATIENT
  Age: 67 Year
  Sex: Female
  Weight: 72.1 kg

DRUGS (2)
  1. BETASERON [Suspect]
     Indication: MULTIPLE SCLEROSIS
     Dosage: 8 MIU, EVERY 2D, SUBCUTANEOUS
     Route: 058
     Dates: start: 20011017, end: 20050326
  2. BETASERON [Suspect]
     Indication: MULTIPLE SCLEROSIS
     Dosage: 8 MIU, EVERY 2D, SUBCUTANEOUS
     Route: 058
     Dates: start: 20050616

REACTIONS (5)
  - KIDNEY INFECTION [None]
  - MEMORY IMPAIRMENT [None]
  - NEPHROLITHIASIS [None]
  - PAIN [None]
  - URINARY TRACT INFECTION [None]
